FAERS Safety Report 4626236-2 (Version None)
Quarter: 2005Q2

REPORT INFORMATION
  Report Type: 
  Country: None (occurrence: None)
  Receive Date: 20050404
  Receipt Date: 20050302
  Transmission Date: 20051028
  Serious: Yes (Death, Hospitalization, Other)
  Sender: FDA-Public Use
  Company Number: JP-BRISTOL-MYERS SQUIBB COMPANY-12891172

PATIENT
  Age: 87 Year
  Sex: Male

DRUGS (15)
  1. GATIFLO TABS 100 MG [Suspect]
     Indication: URINARY TRACT INFECTION
     Route: 048
     Dates: start: 20050225, end: 20050301
  2. CIBENOL [Suspect]
     Route: 048
     Dates: start: 20050216
  3. HOKUNALIN [Concomitant]
     Route: 062
     Dates: start: 20050216
  4. THEOPHYLLINE [Concomitant]
     Route: 048
     Dates: start: 20050220
  5. ROHYPNOL [Concomitant]
     Route: 048
     Dates: start: 20050216
  6. PREDONINE [Concomitant]
     Route: 048
     Dates: start: 20050216
  7. RENIVACE [Concomitant]
     Route: 048
     Dates: start: 20050225
  8. FAMOTIDINE [Concomitant]
     Route: 048
     Dates: start: 20050225
  9. SAWADOL L [Concomitant]
     Route: 062
     Dates: start: 20050228
  10. QVAR 40 [Concomitant]
     Route: 055
     Dates: start: 20050216
  11. TERSIGAN [Concomitant]
     Route: 055
     Dates: start: 20050216
  12. TAKEPRON [Concomitant]
     Route: 048
     Dates: start: 20050216, end: 20050224
  13. FRANDOL TAPE S [Concomitant]
     Route: 062
     Dates: start: 20050216, end: 20050227
  14. BLOPRESS [Concomitant]
     Route: 048
     Dates: start: 20050216, end: 20050224
  15. UNIPHYL [Concomitant]
     Route: 048
     Dates: start: 20050216, end: 20050219

REACTIONS (3)
  - HYPERTENSION [None]
  - HYPOGLYCAEMIA [None]
  - HYPOGLYCAEMIC COMA [None]
